FAERS Safety Report 5716890-6 (Version None)
Quarter: 2008Q2

REPORT INFORMATION
  Report Type: 
  Country: None (occurrence: None)
  Receive Date: 20080424
  Receipt Date: 20080328
  Transmission Date: 20081010
  Serious: No
  Sender: FDA-Public Use
  Company Number: US-BOEHRINGER INGELHEIM GMBH, GERMANY-2008-BP-05027BP

PATIENT
  Sex: Female

DRUGS (3)
  1. ATROVENT HFA [Suspect]
     Indication: EMPHYSEMA
  2. ALBUTEROL SULFATE [Concomitant]
     Indication: EMPHYSEMA
  3. COMBIVENT [Concomitant]
     Indication: EMPHYSEMA

REACTIONS (1)
  - DRUG INEFFECTIVE [None]
